FAERS Safety Report 23370214 (Version 1)
Quarter: 2024Q1

REPORT INFORMATION
  Report Type: Report from Study
  Country: EG (occurrence: EG)
  Receive Date: 20240105
  Receipt Date: 20240105
  Transmission Date: 20240410
  Serious: Yes (Other)
  Sender: FDA-Public Use
  Company Number: EG-HIKMA PHARMACEUTICALS-EG-H14001-23-66710

PATIENT
  Age: 69 Year
  Sex: Female
  Weight: 85 kg

DRUGS (1)
  1. IMATINIB MESYLATE [Suspect]
     Active Substance: IMATINIB MESYLATE
     Indication: Chronic myeloid leukaemia
     Dosage: UNKNOWN, QD
     Route: 048

REACTIONS (11)
  - White blood cell count decreased [Recovering/Resolving]
  - Immunodeficiency [Recovering/Resolving]
  - Influenza [Recovered/Resolved]
  - Fatigue [Recovered/Resolved]
  - Pyrexia [Recovered/Resolved]
  - Abdominal pain upper [Not Recovered/Not Resolved]
  - Neutrophil count decreased [Unknown]
  - Lymphocyte count decreased [Unknown]
  - Blood sodium increased [Recovering/Resolving]
  - Pain in extremity [Unknown]
  - Dysuria [Unknown]

NARRATIVE: CASE EVENT DATE: 20230801
